FAERS Safety Report 8773023 (Version 2)
Quarter: 2012Q4

REPORT INFORMATION
  Report Type: 
  Country: HK (occurrence: HK)
  Receive Date: 20120907
  Receipt Date: 20120919
  Transmission Date: 20130627
  Serious: Yes (Other)
  Sender: FDA-Public Use
  Company Number: HK-ABBOTT-12P-075-0975320-00

PATIENT
  Age: 30 Year
  Sex: Female

DRUGS (2)
  1. ZEMPLAR 5MCG/ML INJECTION [Suspect]
     Indication: PRODUCT USED FOR UNKNOWN INDICATION
     Route: 042
  2. STEROID [Concomitant]
     Indication: PRODUCT USED FOR UNKNOWN INDICATION

REACTIONS (1)
  - Calciphylaxis [Recovered/Resolved]
